FAERS Safety Report 22589136 (Version 1)
Quarter: 2023Q2

REPORT INFORMATION
  Report Type: Spontaneous
  Country: US (occurrence: None)
  Receive Date: 20230609
  Receipt Date: 20230609
  Transmission Date: 20230722
  Serious: Yes (Hospitalization, Other)
  Sender: FDA-Public Use
  Company Number: None

PATIENT
  Age: 60 Year
  Sex: Male
  Weight: 90.3 kg

DRUGS (1)
  1. AXICABTAGENE CILOLEUCEL [Suspect]
     Active Substance: AXICABTAGENE CILOLEUCEL
     Indication: Hodgkin^s disease
     Dosage: 68 OTHER INTRAVENOUS BOLUS
     Route: 040
     Dates: start: 20230403, end: 20230403

REACTIONS (1)
  - Pyrexia [None]

NARRATIVE: CASE EVENT DATE: 20230408
